FAERS Safety Report 9175879 (Version 2)
Quarter: 2013Q2

REPORT INFORMATION
  Report Type: Report from Study
  Country: JP (occurrence: JP)
  Receive Date: 20130320
  Receipt Date: 20130424
  Transmission Date: 20140414
  Serious: Yes (Death)
  Sender: FDA-Public Use
  Company Number: JP-ACTELION-A-CH2013-80814

PATIENT
  Age: 49 Year
  Sex: Female

DRUGS (5)
  1. TRACLEER [Suspect]
     Indication: PULMONARY HYPERTENSION
     Dosage: 62.5 MG, QD
     Route: 048
     Dates: start: 20100214, end: 20100215
  2. HEPARIN SODIUM [Suspect]
     Dosage: UNK
     Route: 042
     Dates: start: 20100209, end: 20100228
  3. EPOPROSTENOL SODIUM [Concomitant]
  4. FUROSEMIDE [Concomitant]
  5. OXYGEN [Concomitant]

REACTIONS (5)
  - Subdural haematoma [Fatal]
  - Depressed level of consciousness [Fatal]
  - Hepatic function abnormal [Not Recovered/Not Resolved]
  - Gamma-glutamyltransferase increased [Not Recovered/Not Resolved]
  - Blood bilirubin increased [Not Recovered/Not Resolved]
